FAERS Safety Report 4551429-2 (Version None)
Quarter: 2005Q1

REPORT INFORMATION
  Report Type: 
  Country: None (occurrence: None)
  Receive Date: 20050104
  Receipt Date: 20041222
  Transmission Date: 20050727
  Serious: Yes (Hospitalization)
  Sender: FDA-Public Use
  Company Number: 2004-03897

PATIENT

DRUGS (1)
  1. BCG THERAPEUTICS [Suspect]
     Indication: BLADDER CANCER
     Dosage: 80.0 MG
     Route: 043
     Dates: start: 20040430, end: 20040625

REACTIONS (2)
  - MALE GENITAL TRACT TUBERCULOSIS [None]
  - PROSTATITIS [None]
